FAERS Safety Report 5296154-8 (Version None)
Quarter: 2007Q2

REPORT INFORMATION
  Report Type: 
  Country: None (occurrence: None)
  Receive Date: 20070413
  Receipt Date: 20070402
  Transmission Date: 20071010
  Serious: Yes (Hospitalization)
  Sender: FDA-Public Use
  Company Number: US-NOVOPROD-261307

PATIENT
  Age: 50 Year
  Sex: Male
  Weight: 99.773 kg

DRUGS (3)
  1. NOVOLOG [Suspect]
     Indication: DIABETES MELLITUS INSULIN-DEPENDENT
     Dosage: UNKNOWN
     Route: 058
     Dates: start: 20010101, end: 20070225
  2. NOVOLOG [Suspect]
     Dosage: SLIDING SCALE, QID
     Route: 058
     Dates: start: 20010101, end: 20070225
  3. NOVOLOG [Suspect]
     Dosage: UNKNOWN
     Route: 058
     Dates: start: 20070228

REACTIONS (2)
  - BLOOD GLUCOSE INCREASED [None]
  - BRONCHITIS [None]
